FAERS Safety Report 12468148 (Version 1)
Quarter: 2016Q2

REPORT INFORMATION
  Report Type: Spontaneous
  Country: US (occurrence: None)
  Receive Date: 20160614
  Receipt Date: 20160614
  Transmission Date: 20160815
  Serious: Yes (Hospitalization)
  Sender: FDA-Public Use
  Company Number: None

PATIENT
  Age: 83 Year
  Sex: Male
  Weight: 100.9 kg

DRUGS (1)
  1. DABIGATRAN [Suspect]
     Active Substance: DABIGATRAN
     Indication: ATRIAL FIBRILLATION
     Route: 048
     Dates: start: 20160126

REACTIONS (6)
  - Gastric polyps [None]
  - Anaemia [None]
  - Gastric disorder [None]
  - Haemorrhoidal haemorrhage [None]
  - Haematochezia [None]
  - Large intestine polyp [None]

NARRATIVE: CASE EVENT DATE: 20160429
